FAERS Safety Report 21791657 (Version 1)
Quarter: 2022Q4

REPORT INFORMATION
  Report Type: Spontaneous
  Country: ZA (occurrence: ZA)
  Receive Date: 20221228
  Receipt Date: 20221228
  Transmission Date: 20230112
  Serious: Yes (Other)
  Sender: FDA-Public Use
  Company Number: ZA-002147023-NVSC2022ZA298100

PATIENT
  Age: 67 Year
  Sex: Female

DRUGS (1)
  1. VALSARTAN [Suspect]
     Active Substance: VALSARTAN
     Indication: Hypertension
     Dosage: 240 MG, QD (160 MG IN MORNING AND 80 MG IN NIGHT)
     Route: 048

REACTIONS (4)
  - Ejection fraction decreased [Unknown]
  - Dyspnoea [Unknown]
  - Orthopnoea [Unknown]
  - Oedema peripheral [Unknown]
